FAERS Safety Report 5262760-X (Version None)
Quarter: 2007Q1

REPORT INFORMATION
  Report Type: 
  Country: None (occurrence: None)
  Receive Date: 20070312
  Receipt Date: 20070308
  Transmission Date: 20070707
  Serious: Yes (Other)
  Sender: FDA-Public Use
  Company Number: 2007-001465

PATIENT
  Age: 65 Year
  Sex: Female
  Weight: 77 kg

DRUGS (8)
  1. FLOLAN [Suspect]
     Indication: PULMONARY HYPERTENSION
     Dosage: 14NGKM UNKNOWN
     Route: 042
     Dates: start: 20061201
  2. COMPAZINE [Concomitant]
     Dosage: 5ML AS REQUIRED
     Route: 048
  3. GUAIFENESIN [Concomitant]
     Dosage: 10ML THREE TIMES PER DAY
     Route: 048
  4. CLARITIN-D [Concomitant]
     Dosage: 1TAB PER DAY
     Route: 048
  5. EVOXAC [Concomitant]
     Dosage: 30MG THREE TIMES PER DAY
     Route: 048
  6. PROTONIX [Concomitant]
     Dosage: 40MG PER DAY
     Route: 048
  7. TRIAMTERENE AND HYDROCHLOROTHIAZIDE [Concomitant]
     Dosage: 1TAB PER DAY
     Route: 048
  8. SODIUM CHLORIDE [Concomitant]

REACTIONS (2)
  - CATHETER RELATED COMPLICATION [None]
  - PHARMACEUTICAL PRODUCT COMPLAINT [None]
